FAERS Safety Report 7829951-2 (Version None)
Quarter: 2011Q4

REPORT INFORMATION
  Report Type: 
  Country: None (occurrence: None)
  Receive Date: 20111021
  Receipt Date: 20111003
  Transmission Date: 20120403
  Serious: Yes (Hospitalization)
  Sender: FDA-Public Use
  Company Number: JP-BAYER-2011-092715

PATIENT
  Age: 78 Year
  Sex: Male

DRUGS (5)
  1. ASPIRIN [Suspect]
     Dosage: UNK
     Route: 048
     Dates: start: 20090101
  2. WARFARIN SODIUM [Suspect]
     Dosage: UNK
     Route: 048
     Dates: start: 20090101
  3. CLOPIDOGREL BISULFATE [Suspect]
     Dosage: UNK
     Route: 048
     Dates: start: 20090101
  4. ANPLAG [Suspect]
     Dosage: UNK
     Route: 048
     Dates: start: 20090101
  5. ALPROSTADIL [Suspect]
     Dosage: UNK
     Route: 042
     Dates: start: 20090101

REACTIONS (3)
  - RENAL FAILURE [None]
  - GASTROINTESTINAL HAEMORRHAGE [None]
  - FAT EMBOLISM [None]
